FAERS Safety Report 16907537 (Version 4)
Quarter: 2020Q1

REPORT INFORMATION
  Report Type: Spontaneous
  Country: US (occurrence: US)
  Receive Date: 20191011
  Receipt Date: 20200117
  Transmission Date: 20200409
  Serious: Yes (Other)
  Sender: FDA-Public Use
  Company Number: US-CELGENEUS-USA-20191001075

PATIENT
  Sex: Female

DRUGS (2)
  1. POMALYST [Suspect]
     Active Substance: POMALIDOMIDE
     Indication: PANIC DISORDER
     Dosage: 4 MILLIGRAM
     Route: 048
     Dates: start: 20190425
  2. POMALYST [Suspect]
     Active Substance: POMALIDOMIDE
     Indication: PLASMA CELL MYELOMA RECURRENT
     Dosage: 3 MILLIGRAM (WITHOUT FOOD AT LEAST 2 HOURS BEFORE OR AFTER MEAL)
     Route: 048
     Dates: start: 201911

REACTIONS (11)
  - Depression [Unknown]
  - Neuropathy peripheral [Recovered/Resolved]
  - White blood cell disorder [Unknown]
  - Rash [Recovered/Resolved]
  - Asthenia [Unknown]
  - Insomnia [Unknown]
  - Adverse drug reaction [Unknown]
  - Fatigue [Unknown]
  - Pancytopenia [Recovered/Resolved]
  - Platelet disorder [Unknown]
  - Lethargy [Unknown]

NARRATIVE: CASE EVENT DATE: 2019
